FAERS Safety Report 4323463-9 (Version None)
Quarter: 2004Q1

REPORT INFORMATION
  Report Type: 
  Country: None (occurrence: None)
  Receive Date: 20040325
  Receipt Date: 20040317
  Transmission Date: 20041129
  Serious: Yes (Hospitalization)
  Sender: FDA-Public Use
  Company Number: CA-ROCHE-362143

PATIENT
  Age: 64 Year
  Sex: Male
  Weight: 54.5 kg

DRUGS (6)
  1. CAPECITABINE [Suspect]
     Indication: COLORECTAL CANCER
     Route: 048
     Dates: start: 20031110, end: 20031128
  2. MS CONTIN [Concomitant]
     Dates: start: 20030915, end: 20031215
  3. NEXIUM [Concomitant]
     Dates: start: 20030915
  4. ZANTAC [Concomitant]
     Dosage: TOTAL DAILY DOSE: 150.
     Dates: start: 20030915
  5. DURAGESIC [Concomitant]
     Dates: start: 20031215
  6. IMODIUM [Concomitant]
     Dates: start: 20031015

REACTIONS (3)
  - COLORECTAL CANCER [None]
  - MALIGNANT NEOPLASM PROGRESSION [None]
  - SMALL INTESTINAL OBSTRUCTION [None]
